FAERS Safety Report 8994748 (Version 1)
Quarter: 2012Q4

REPORT INFORMATION
  Report Type: Spontaneous
  Country: US (occurrence: None)
  Receive Date: 20121221
  Receipt Date: 20121221
  Transmission Date: 20130627
  Serious: Yes (Other)
  Sender: FDA-Public Use
  Company Number: DKLU1087301

PATIENT
  Age: 18 Year
  Sex: Male

DRUGS (2)
  1. SABRIL [Suspect]
     Indication: EPILEPSY
     Dosage: 750 mg, 4 in 1 D
     Route: 048
     Dates: start: 20121015
  2. SABRIL [Suspect]
     Indication: COMPLEX PARTIAL SEIZURES
     Dosage: 750 mg, 4 in 1 D
     Route: 048
     Dates: start: 20121015

REACTIONS (2)
  - Pneumonia [None]
  - Bronchitis [None]
